FAERS Safety Report 13919314 (Version 1)
Quarter: 2017Q3

REPORT INFORMATION
  Report Type: Spontaneous
  Country: EC (occurrence: EC)
  Receive Date: 20170830
  Receipt Date: 20170830
  Transmission Date: 20171127
  Serious: Yes (Other)
  Sender: FDA-Public Use
  Company Number: EC-009507513-1708ECU011345

PATIENT
  Age: 20 Month
  Sex: Male

DRUGS (1)
  1. PROSCAR [Suspect]
     Active Substance: FINASTERIDE
     Dosage: UNKNOWN
     Route: 064

REACTIONS (2)
  - Testis cancer [Not Recovered/Not Resolved]
  - Exposure via body fluid [Recovered/Resolved]

NARRATIVE: CASE EVENT DATE: 2015
